FAERS Safety Report 9486628 (Version 1)
Quarter: 2013Q3

REPORT INFORMATION
  Report Type: Spontaneous
  Country: TR (occurrence: None)
  Receive Date: 20130823
  Receipt Date: 20130823
  Transmission Date: 20140515
  Serious: Yes (Hospitalization)
  Sender: FDA-Public Use
  Company Number: B0916652A

PATIENT
  Age: 10 Year
  Sex: Male

DRUGS (1)
  1. CEFUROXIME AXETIL [Suspect]
     Indication: ACUTE SINUSITIS

REACTIONS (4)
  - Dystonia [None]
  - Restlessness [None]
  - Oculogyric crisis [None]
  - Torticollis [None]
